FAERS Safety Report 7417980-2 (Version None)
Quarter: 2011Q2

REPORT INFORMATION
  Report Type: 
  Country: None (occurrence: None)
  Receive Date: 20110415
  Receipt Date: 20110411
  Transmission Date: 20111010
  Serious: Yes (Other)
  Sender: FDA-Public Use
  Company Number: US-ROCHE-748135

PATIENT
  Sex: Female

DRUGS (4)
  1. RIBAVIRIN [Suspect]
     Indication: HEPATITIS C
     Dosage: IN DIVIDED DOSES,
     Route: 048
     Dates: start: 20100922
  2. SEROQUEL [Concomitant]
     Indication: INSOMNIA
     Dosage: DRUG NAME REPORTED AS 'SEROQUEL XR'
  3. PEGINTERFERON ALFA-2A [Suspect]
     Indication: HEPATITIS C
     Dosage: FORM: PRE-FILLED SYRINGE,
     Route: 058
     Dates: start: 20100922
  4. MIRAPEX [Concomitant]

REACTIONS (6)
  - BLOOD POTASSIUM DECREASED [None]
  - MUSCLE SPASMS [None]
  - INFLUENZA LIKE ILLNESS [None]
  - FATIGUE [None]
  - MASS [None]
  - ALOPECIA [None]
